FAERS Safety Report 8051552-4 (Version None)
Quarter: 2012Q1

REPORT INFORMATION
  Report Type: 
  Country: None (occurrence: None)
  Receive Date: 20120117
  Receipt Date: 20120104
  Transmission Date: 20120608
  Serious: Yes (Hospitalization, Other)
  Sender: FDA-Public Use
  Company Number: PHHO2009JP15061

PATIENT
  Sex: Male
  Weight: 41 kg

DRUGS (16)
  1. ISODINE [Concomitant]
     Indication: INFECTION PROPHYLAXIS
  2. DOXAZOSIN MESYLATE [Concomitant]
     Indication: RENAL HYPERTENSION
  3. CERTICAN [Suspect]
     Dosage: 1MG
     Route: 048
     Dates: start: 20091210, end: 20100420
  4. NEORAL [Suspect]
     Indication: RENAL TRANSPLANT
     Dosage: 40MG
     Route: 048
     Dates: start: 20090924
  5. LANSOPRAZOLE [Concomitant]
     Indication: GASTRITIS PROPHYLAXIS
  6. CANDESARTAN CILEXETIL [Concomitant]
     Indication: RENAL HYPERTENSION
  7. PRAVASTATIN SODIUM [Concomitant]
     Indication: HYPERCHOLESTEROLAEMIA
  8. SPIRIVA [Concomitant]
     Indication: EMPHYSEMA
  9. URINORM [Concomitant]
     Indication: HYPERURICAEMIA
  10. CERTICAN [Suspect]
     Indication: RENAL TRANSPLANT
     Dosage: 1 MG
     Route: 048
     Dates: start: 20090701, end: 20091203
  11. MEDROL [Concomitant]
     Indication: RENAL TRANSPLANT
     Dosage: 4 MG
     Route: 048
     Dates: start: 20081024
  12. NEUER [Concomitant]
     Indication: GASTRITIS PROPHYLAXIS
  13. CERTICAN [Suspect]
     Dosage: 1 MG
     Route: 048
     Dates: start: 20100426
  14. SIMULECT [Concomitant]
     Indication: RENAL TRANSPLANT
  15. NORVASC [Concomitant]
     Indication: RENAL HYPERTENSION
  16. BISOPROLOL FUMARATE [Concomitant]
     Indication: RENAL HYPERTENSION

REACTIONS (5)
  - PYREXIA [None]
  - PNEUMONIA [None]
  - PNEUMOTHORAX [None]
  - NEPHROPATHY [None]
  - PNEUMONIA BACTERIAL [None]
